FAERS Safety Report 5452787-7 (Version None)
Quarter: 2007Q3

REPORT INFORMATION
  Report Type: 
  Country: None (occurrence: None)
  Receive Date: 20070914
  Receipt Date: 20070907
  Transmission Date: 20080115
  Serious: Yes (Life-Threatening)
  Sender: FDA-Public Use
  Company Number: FR-ELI_LILLY_AND_COMPANY-FR200709001897

PATIENT
  Sex: Female

DRUGS (2)
  1. FORTEO [Suspect]
     Route: 058
  2. CORTICOSTEROID NOS [Concomitant]
     Indication: ASTHMA
     Route: 055

REACTIONS (4)
  - ASPHYXIA [None]
  - NAUSEA [None]
  - VERTIGO [None]
  - VOMITING [None]
